FAERS Safety Report 18272791 (Version 1)
Quarter: 2020Q3

REPORT INFORMATION
  Report Type: Report from Study
  Country: GB (occurrence: GB)
  Receive Date: 20200916
  Receipt Date: 20200916
  Transmission Date: 20201103
  Serious: Yes (Other)
  Sender: FDA-Public Use
  Company Number: GB-JNJFOC-20200910181

PATIENT

DRUGS (3)
  1. ADALIMUMAB [Suspect]
     Active Substance: ADALIMUMAB
     Indication: PSORIASIS
     Route: 065
  2. STELARA [Suspect]
     Active Substance: USTEKINUMAB
     Indication: PSORIASIS
     Route: 058
  3. SECUKINUMAB. [Suspect]
     Active Substance: SECUKINUMAB
     Indication: PSORIASIS
     Route: 065

REACTIONS (29)
  - Metabolic disorder [Unknown]
  - Musculoskeletal disorder [Unknown]
  - Connective tissue disorder [Unknown]
  - Skin disorder [Unknown]
  - Drug ineffective [Unknown]
  - Lymphatic disorder [Unknown]
  - Mental disorder [Unknown]
  - Gastrointestinal disorder [Unknown]
  - Reproductive tract disorder [Unknown]
  - Exposure during pregnancy [Unknown]
  - Endocrine disorder [Unknown]
  - Procedural complication [Unknown]
  - Respiratory disorder [Unknown]
  - Administration site reaction [Unknown]
  - Poisoning [Unknown]
  - Benign neoplasm [Unknown]
  - Nervous system disorder [Unknown]
  - Breast disorder [Unknown]
  - Infection [Unknown]
  - Renal disorder [Unknown]
  - Neoplasm malignant [Unknown]
  - Cardiac disorder [Unknown]
  - Urinary tract disorder [Unknown]
  - Angiopathy [Unknown]
  - Blood disorder [Unknown]
  - Infestation [Unknown]
  - Hepatobiliary disease [Unknown]
  - Injury [Unknown]
  - Malnutrition [Unknown]
